FAERS Safety Report 7910276-1 (Version None)
Quarter: 2011Q4

REPORT INFORMATION
  Report Type: 
  Country: None (occurrence: None)
  Receive Date: 20111111
  Receipt Date: 20111102
  Transmission Date: 20120403
  Serious: Yes (Death, Disabling)
  Sender: FDA-Public Use
  Company Number: JP-ROCHE-1000599

PATIENT
  Sex: Female

DRUGS (8)
  1. VALGANCICLOVIR [Suspect]
     Route: 048
     Dates: start: 20110730, end: 20110808
  2. VALTREX [Concomitant]
     Route: 048
     Dates: start: 20110823
  3. VALGANCICLOVIR [Suspect]
     Route: 048
     Dates: start: 20110823, end: 20110829
  4. SILICONE OIL [Concomitant]
     Route: 031
     Dates: start: 20110725
  5. STEROID EYE DROPS [Concomitant]
     Route: 031
     Dates: start: 20110615
  6. VALGANCICLOVIR [Suspect]
     Indication: CYTOMEGALOVIRUS CHORIORETINITIS
     Route: 048
     Dates: start: 20110809, end: 20110822
  7. VALGANCICLOVIR [Suspect]
     Route: 048
     Dates: start: 20110830, end: 20110902
  8. ZOVIRAX [Concomitant]
     Route: 041
     Dates: start: 20110809, end: 20110822

REACTIONS (1)
  - BONE MARROW FAILURE [None]
